FAERS Safety Report 8985596 (Version 1)
Quarter: 2012Q4

REPORT INFORMATION
  Report Type: 
  Country: BE (occurrence: BE)
  Receive Date: 20121226
  Receipt Date: 20121226
  Transmission Date: 20130627
  Serious: Yes (Other)
  Sender: FDA-Public Use
  Company Number: BE-PFIZER INC-2012322925

PATIENT

DRUGS (1)
  1. SUTENT [Suspect]
     Dosage: UNK
     Dates: start: 201212

REACTIONS (2)
  - Pancytopenia [Unknown]
  - Microangiopathy [Unknown]
